FAERS Safety Report 25120008 (Version 1)
Quarter: 2025Q1

REPORT INFORMATION
  Report Type: Spontaneous
  Country: JP (occurrence: JP)
  Receive Date: 20250325
  Receipt Date: 20250325
  Transmission Date: 20250408
  Serious: Yes (Other)
  Sender: ABBVIE
  Company Number: JP-LUNDBECK-DKLU4012372

PATIENT
  Age: 76 Year

DRUGS (1)
  1. LEXAPRO [Suspect]
     Active Substance: ESCITALOPRAM OXALATE
     Indication: Product used for unknown indication
     Dosage: OVERDOSE: 60MG
     Route: 048

REACTIONS (3)
  - Electrocardiogram QRS complex prolonged [Unknown]
  - Overdose [Unknown]
  - Toxicity to various agents [Unknown]
